FAERS Safety Report 4380162-5 (Version None)
Quarter: 2004Q2

REPORT INFORMATION
  Report Type: 
  Country: None (occurrence: None)
  Receive Date: 20040614
  Receipt Date: 20040422
  Transmission Date: 20050107
  Serious: No
  Sender: FDA-Public Use
  Company Number: M04-341-124

PATIENT
  Age: 76 Year
  Sex: Female
  Weight: 83 kg

DRUGS (8)
  1. VELCADE [Suspect]
     Indication: MULTIPLE MYELOMA
     Dosage: 2.4 MG: INTRAVENOUS BOLUS
     Route: 040
     Dates: start: 20040315
  2. AREDIA [Concomitant]
  3. ATENOLOL [Concomitant]
  4. CALCIUM [Concomitant]
  5. DILTIAZEM [Concomitant]
  6. IBUPROFEN [Concomitant]
  7. VITAMIN CAP [Concomitant]
  8. PROCRIT (ERYTHROPOIETIN) [Concomitant]

REACTIONS (2)
  - DIZZINESS [None]
  - ORTHOSTATIC HYPOTENSION [None]
